FAERS Safety Report 23499964 (Version 2)
Quarter: 2024Q1

REPORT INFORMATION
  Report Type: Spontaneous
  Country: JP (occurrence: JP)
  Receive Date: 20240208
  Receipt Date: 20240229
  Transmission Date: 20240410
  Serious: Yes (Other)
  Sender: FDA-Public Use
  Company Number: JP-AMGEN-JPNSP2024022720

PATIENT
  Sex: Female

DRUGS (8)
  1. BLINCYTO [Suspect]
     Active Substance: BLINATUMOMAB
     Indication: B precursor type acute leukaemia
     Dosage: 28 MICROGRAM, 24-HOUR CONTINUOUS DRIP INFUSION
     Route: 042
     Dates: start: 20230821
  2. BLINCYTO [Suspect]
     Active Substance: BLINATUMOMAB
     Indication: Philadelphia chromosome positive
     Dosage: UNK, 24-HOUR CONTINUOUS DRIP INFUSION
     Route: 042
  3. BLINCYTO [Suspect]
     Active Substance: BLINATUMOMAB
     Dosage: UNK, 24-HOUR CONTINUOUS DRIP INFUSION
     Route: 042
  4. BLINCYTO [Suspect]
     Active Substance: BLINATUMOMAB
     Dosage: UNK, 24-HOUR CONTINUOUS DRIP INFUSION, CYCLE 4
     Route: 042
     Dates: start: 202401, end: 20240201
  5. PONATINIB [Concomitant]
     Active Substance: PONATINIB
  6. SULFAMETHOXAZOLE\TRIMETHOPRIM [Concomitant]
     Active Substance: SULFAMETHOXAZOLE\TRIMETHOPRIM
  7. FLUCONAZOLE [Concomitant]
     Active Substance: FLUCONAZOLE
  8. ASPIRIN [Concomitant]
     Active Substance: ASPIRIN

REACTIONS (2)
  - B precursor type acute leukaemia [Unknown]
  - Retroperitoneal mass [Not Recovered/Not Resolved]

NARRATIVE: CASE EVENT DATE: 20240130
